FAERS Safety Report 5811790-5 (Version None)
Quarter: 2008Q3

REPORT INFORMATION
  Report Type: 
  Country: None (occurrence: None)
  Receive Date: 20080715
  Receipt Date: 20080715
  Transmission Date: 20090109
  Serious: Yes (Life-Threatening, Hospitalization)
  Sender: FDA-Public Use
  Company Number: None

PATIENT
  Age: 58 Year
  Sex: Male
  Weight: 83.9154 kg

DRUGS (1)
  1. TORADOL [Suspect]
     Dosage: 10 MG PO
     Route: 048
     Dates: start: 20080713, end: 20080713

REACTIONS (1)
  - ANAPHYLACTIC REACTION [None]
